FAERS Safety Report 15898988 (Version 8)
Quarter: 2024Q1

REPORT INFORMATION
  Report Type: Spontaneous
  Country: CA (occurrence: CA)
  Receive Date: 20190201
  Receipt Date: 20240325
  Transmission Date: 20240410
  Serious: Yes (Hospitalization, Disabling, Other)
  Sender: FDA-Public Use
  Company Number: CA-002147023-PHHY2018CA019720

PATIENT

DRUGS (63)
  1. DICLOFENAC [Suspect]
     Active Substance: DICLOFENAC
     Indication: Product used for unknown indication
     Dosage: UNK, (75 OT, UNK)
     Route: 065
     Dates: start: 2010, end: 2017
  2. DICLOFENAC [Suspect]
     Active Substance: DICLOFENAC
     Dosage: UNK
     Route: 065
  3. DICLOFENAC [Suspect]
     Active Substance: DICLOFENAC
     Dosage: UNK
     Route: 065
  4. DICLOFENAC SODIUM [Suspect]
     Active Substance: DICLOFENAC\DICLOFENAC SODIUM
     Indication: Product used for unknown indication
     Dosage: UNK
     Route: 065
  5. COSENTYX [Suspect]
     Active Substance: SECUKINUMAB
     Indication: Psoriatic arthropathy
     Dosage: UNK
     Route: 065
  6. COSENTYX [Suspect]
     Active Substance: SECUKINUMAB
     Indication: Psoriasis
     Dosage: UNK
     Route: 065
  7. COSENTYX [Suspect]
     Active Substance: SECUKINUMAB
     Indication: Ankylosing spondylitis
     Dosage: UNK
     Route: 065
  8. COSENTYX [Suspect]
     Active Substance: SECUKINUMAB
     Dosage: UNK
     Route: 065
  9. COSENTYX [Suspect]
     Active Substance: SECUKINUMAB
     Dosage: UNK
     Route: 065
  10. METHOTREXATE [Suspect]
     Active Substance: METHOTREXATE
     Indication: Psoriasis
     Dosage: UNK
     Route: 065
     Dates: start: 2012, end: 201607
  11. METHOTREXATE [Suspect]
     Active Substance: METHOTREXATE
     Indication: Psoriatic arthropathy
     Dosage: UNK
     Route: 065
  12. METHOTREXATE [Suspect]
     Active Substance: METHOTREXATE
     Indication: Ankylosing spondylitis
     Dosage: UNK
     Route: 065
     Dates: start: 2012, end: 201607
  13. METHOTREXATE [Suspect]
     Active Substance: METHOTREXATE
     Indication: Psoriasis
     Dosage: UNK
     Route: 065
  14. METHOTREXATE [Suspect]
     Active Substance: METHOTREXATE
     Dosage: UNK
     Route: 065
  15. NAPROSYN [Suspect]
     Active Substance: NAPROXEN
     Indication: Product used for unknown indication
     Dosage: 2 DF, QD (2 DOSAGE FORM, QD)
     Route: 065
     Dates: start: 2013, end: 2013
  16. NAPROSYN [Suspect]
     Active Substance: NAPROXEN
     Dosage: 2 DF, QD (2 DOSAGE FORM, QD)
     Route: 065
  17. STELARA [Suspect]
     Active Substance: USTEKINUMAB
     Indication: Psoriasis
     Dosage: UNK
     Route: 058
     Dates: start: 201708, end: 201712
  18. STELARA [Suspect]
     Active Substance: USTEKINUMAB
     Indication: Psoriatic arthropathy
     Dosage: UNK
     Route: 065
  19. STELARA [Suspect]
     Active Substance: USTEKINUMAB
     Indication: Ankylosing spondylitis
     Dosage: UNK
     Route: 065
  20. STELARA [Suspect]
     Active Substance: USTEKINUMAB
     Indication: Psoriasis
     Dosage: UNK
     Route: 065
  21. OTEZLA [Suspect]
     Active Substance: APREMILAST
     Indication: Psoriasis
     Dosage: UNK
     Route: 048
     Dates: start: 2015, end: 2017
  22. OTEZLA [Suspect]
     Active Substance: APREMILAST
     Indication: Psoriatic arthropathy
     Dosage: UNK
     Route: 048
  23. OTEZLA [Suspect]
     Active Substance: APREMILAST
     Indication: Ankylosing spondylitis
     Dosage: UNK
     Route: 065
  24. OTEZLA [Suspect]
     Active Substance: APREMILAST
     Indication: Psoriasis
     Dosage: UNK
     Route: 065
  25. OTEZLA [Suspect]
     Active Substance: APREMILAST
     Dosage: UNK
     Route: 065
  26. REMICADE [Suspect]
     Active Substance: INFLIXIMAB
     Indication: Psoriasis
     Dosage: UNK
     Route: 042
     Dates: start: 201601, end: 201607
  27. REMICADE [Suspect]
     Active Substance: INFLIXIMAB
     Indication: Psoriatic arthropathy
     Dosage: UNK
     Route: 065
  28. REMICADE [Suspect]
     Active Substance: INFLIXIMAB
     Indication: Ankylosing spondylitis
     Dosage: UNK
     Route: 065
  29. REMICADE [Suspect]
     Active Substance: INFLIXIMAB
     Indication: Psoriasis
     Dosage: UNK
     Route: 065
  30. REMICADE [Suspect]
     Active Substance: INFLIXIMAB
     Dosage: UNK
     Route: 065
  31. REMICADE [Suspect]
     Active Substance: INFLIXIMAB
     Dosage: UNK
     Route: 065
  32. HUMIRA [Suspect]
     Active Substance: ADALIMUMAB
     Indication: Psoriatic arthropathy
     Dosage: 40 MG, UNK
     Route: 058
     Dates: start: 2013, end: 2014
  33. HUMIRA [Suspect]
     Active Substance: ADALIMUMAB
     Indication: Psoriasis
     Dosage: UNK
     Route: 058
  34. HUMIRA [Suspect]
     Active Substance: ADALIMUMAB
     Indication: Ankylosing spondylitis
     Dosage: UNK
     Route: 065
  35. HUMIRA [Suspect]
     Active Substance: ADALIMUMAB
     Indication: Psoriasis
     Dosage: UNK
     Route: 065
  36. HUMIRA [Suspect]
     Active Substance: ADALIMUMAB
     Dosage: UNK
     Route: 065
  37. HUMIRA [Suspect]
     Active Substance: ADALIMUMAB
     Dosage: UNK
     Route: 065
  38. ENBREL [Suspect]
     Active Substance: ETANERCEPT
     Indication: Psoriasis
     Dosage: UNK
     Route: 065
     Dates: start: 201401, end: 201407
  39. ENBREL [Suspect]
     Active Substance: ETANERCEPT
     Indication: Psoriatic arthropathy
     Dosage: UNK
     Route: 065
  40. ENBREL [Suspect]
     Active Substance: ETANERCEPT
     Indication: Ankylosing spondylitis
     Dosage: UNK
     Route: 065
  41. ENBREL [Suspect]
     Active Substance: ETANERCEPT
     Indication: Psoriasis
     Dosage: UNK
     Route: 065
  42. ENBREL [Suspect]
     Active Substance: ETANERCEPT
     Dosage: UNK
     Route: 065
  43. INFLIXIMAB [Suspect]
     Active Substance: INFLIXIMAB
     Indication: Psoriatic arthropathy
     Dosage: 3 MG/KG (3 MG/KG, UNK)
     Route: 042
  44. INFLIXIMAB [Suspect]
     Active Substance: INFLIXIMAB
     Indication: Ankylosing spondylitis
     Dosage: UNK
     Route: 065
  45. INFLIXIMAB [Suspect]
     Active Substance: INFLIXIMAB
     Indication: Psoriasis
     Dosage: 3 MG/KG (3 MG/KG, UNK)
     Route: 042
  46. INFLIXIMAB [Suspect]
     Active Substance: INFLIXIMAB
     Dosage: UNK
     Route: 065
  47. SULFASALAZINE [Suspect]
     Active Substance: SULFASALAZINE
     Indication: Psoriasis
     Dosage: UNK
     Route: 065
     Dates: start: 2016
  48. SULFASALAZINE [Suspect]
     Active Substance: SULFASALAZINE
     Indication: Psoriatic arthropathy
     Dosage: UNK
     Route: 065
  49. SULFASALAZINE [Suspect]
     Active Substance: SULFASALAZINE
     Indication: Psoriatic arthropathy
     Dosage: UNK
     Route: 065
  50. SULFASALAZINE [Suspect]
     Active Substance: SULFASALAZINE
     Indication: Ankylosing spondylitis
     Dosage: UNK
     Route: 065
  51. SULFASALAZINE [Suspect]
     Active Substance: SULFASALAZINE
     Dosage: UNK
     Route: 065
  52. STELARA [Suspect]
     Active Substance: USTEKINUMAB
     Indication: Psoriatic arthropathy
     Dosage: UNK
     Route: 058
  53. STELARA [Suspect]
     Active Substance: USTEKINUMAB
     Indication: Ankylosing spondylitis
  54. STELARA [Suspect]
     Active Substance: USTEKINUMAB
     Indication: Psoriasis
  55. COSENTYX [Suspect]
     Active Substance: SECUKINUMAB
     Indication: Psoriatic arthropathy
     Dosage: UNK
     Route: 065
  56. COSENTYX [Suspect]
     Active Substance: SECUKINUMAB
     Indication: Psoriasis
  57. COSENTYX [Suspect]
     Active Substance: SECUKINUMAB
     Indication: Ankylosing spondylitis
  58. HUMIRA [Suspect]
     Active Substance: ADALIMUMAB
     Indication: Psoriatic arthropathy
     Dosage: 40 MG
     Route: 058
  59. HUMIRA [Suspect]
     Active Substance: ADALIMUMAB
     Indication: Ankylosing spondylitis
  60. HUMIRA [Suspect]
     Active Substance: ADALIMUMAB
     Indication: Psoriasis
  61. REMICADE [Suspect]
     Active Substance: INFLIXIMAB
     Indication: Psoriatic arthropathy
     Dosage: UNK
     Route: 042
  62. REMICADE [Suspect]
     Active Substance: INFLIXIMAB
     Indication: Ankylosing spondylitis
  63. REMICADE [Suspect]
     Active Substance: INFLIXIMAB
     Indication: Psoriasis

REACTIONS (3)
  - Infection [Not Recovered/Not Resolved]
  - Drug ineffective [Not Recovered/Not Resolved]
  - Off label use [Not Recovered/Not Resolved]
